FAERS Safety Report 15841589 (Version 1)
Quarter: 2019Q1

REPORT INFORMATION
  Report Type: Spontaneous
  Country: FR (occurrence: FR)
  Receive Date: 20190118
  Receipt Date: 20190118
  Transmission Date: 20190417
  Serious: Yes (Death, Hospitalization, Other)
  Sender: FDA-Public Use
  Company Number: FR-JNJFOC-20190109679

PATIENT
  Age: 79 Year
  Sex: Male

DRUGS (11)
  1. LOPERAMIDE [Suspect]
     Active Substance: LOPERAMIDE
     Indication: DIARRHOEA
     Dosage: QD
     Route: 065
  2. PACLITAXEL. [Interacting]
     Active Substance: PACLITAXEL
     Indication: NON-SMALL CELL LUNG CANCER
     Route: 065
  3. PREDNISOLONE. [Interacting]
     Active Substance: PREDNISOLONE
     Indication: PRODUCT USED FOR UNKNOWN INDICATION
     Route: 065
  4. PREDNISOLONE. [Interacting]
     Active Substance: PREDNISOLONE
     Indication: PRODUCT USED FOR UNKNOWN INDICATION
     Route: 065
  5. METHYLPREDNISOLONE. [Interacting]
     Active Substance: METHYLPREDNISOLONE
     Indication: VOMITING
     Route: 065
  6. LOPERAMIDE [Suspect]
     Active Substance: LOPERAMIDE
     Route: 065
  7. PIPERACILLIN/TAZOBACTAM [Interacting]
     Active Substance: PIPERACILLIN SODIUM\TAZOBACTAM SODIUM
     Indication: PRODUCT USED FOR UNKNOWN INDICATION
     Route: 065
  8. CARBOPLATIN. [Concomitant]
     Active Substance: CARBOPLATIN
     Indication: NON-SMALL CELL LUNG CANCER
     Route: 065
  9. CIPROFLOXACIN. [Interacting]
     Active Substance: CIPROFLOXACIN
     Indication: DIARRHOEA
     Route: 065
  10. RACECADOTRIL [Interacting]
     Active Substance: RACECADOTRIL
     Indication: DIARRHOEA
     Route: 065
  11. ERLOTINIB [Interacting]
     Active Substance: ERLOTINIB
     Indication: NON-SMALL CELL LUNG CANCER
     Dosage: QD
     Route: 065

REACTIONS (11)
  - Abdominal distension [Fatal]
  - Renal failure [Unknown]
  - Vomiting [Fatal]
  - Abdominal pain upper [Fatal]
  - Dehydration [Unknown]
  - Diarrhoea [Fatal]
  - Pyrexia [Fatal]
  - Gastrointestinal perforation [Fatal]
  - Pneumoperitoneum [Fatal]
  - Scan abdomen abnormal [Fatal]
  - Drug interaction [Fatal]
